FAERS Safety Report 10018904 (Version 2)
Quarter: 2014Q2

REPORT INFORMATION
  Report Type: Spontaneous
  Country: NL (occurrence: NL)
  Receive Date: 20140318
  Receipt Date: 20140410
  Transmission Date: 20141212
  Serious: Yes (Death, Hospitalization)
  Sender: FDA-Public Use
  Company Number: NL-ACTELION-A-CH2014-96279

PATIENT
  Age: 77 Year
  Sex: Female
  Weight: 56 kg

DRUGS (11)
  1. TRACLEER [Suspect]
     Indication: PULMONARY ARTERIAL HYPERTENSION
     Dosage: 62.5 MG, BID
     Route: 048
     Dates: start: 20140106, end: 20140131
  2. ACENOCOUMAROL [Concomitant]
  3. APIDRA [Concomitant]
     Dosage: 6 IU, UNK
  4. LANTUS [Concomitant]
     Dosage: 6 IU, UNK
  5. ATROVENT [Concomitant]
     Dosage: 20 MCG, QID
  6. FOSTER [Concomitant]
     Dosage: UNK, BID
  7. FUROSEMIDE [Concomitant]
     Dosage: 40 MG, UNK
  8. SOTALOL [Concomitant]
     Dosage: 80 MG, TID
  9. VENTOLIN [Concomitant]
     Dosage: 100 MG, PRN
  10. VESICARE [Concomitant]
     Dosage: 5 MG, UNK
  11. OXAZEPAM [Concomitant]
     Dosage: 5 MG, UNK

REACTIONS (2)
  - Pneumonia [Fatal]
  - Respiratory failure [Fatal]
